FAERS Safety Report 26023704 (Version 1)
Quarter: 2025Q4

REPORT INFORMATION
  Report Type: Spontaneous
  Country: EU (occurrence: EU)
  Receive Date: 20251111
  Receipt Date: 20251111
  Transmission Date: 20260118
  Serious: Yes (Hospitalization, Other)
  Sender: ROCHE
  Company Number: None

PATIENT
  Age: 62 Year
  Sex: Male

DRUGS (14)
  1. ATEZOLIZUMAB [Suspect]
     Active Substance: ATEZOLIZUMAB
     Indication: Colorectal cancer metastatic
     Dosage: ONCE EVERY 1 CYCLICAL
     Route: 065
     Dates: start: 20250725, end: 20250725
  2. ATEZOLIZUMAB [Suspect]
     Active Substance: ATEZOLIZUMAB
     Route: 065
     Dates: start: 20251003
  3. BEVACIZUMAB [Suspect]
     Active Substance: BEVACIZUMAB
     Indication: Product used for unknown indication
     Dosage: BEVACIZUMAB 500 MG (1ST ADMINISTRATION)
     Route: 065
  4. CAPECITABINE [Suspect]
     Active Substance: CAPECITABINE
     Indication: Colorectal cancer metastatic
     Dosage: ONCE EVERY 5 DAY?TOTAL DOSE: 1800 MG (DUE TO DIFFERENT UNITS IN THERAPY DATA)
     Route: 065
     Dates: start: 20250725, end: 20250729
  5. CAPECITABINE [Suspect]
     Active Substance: CAPECITABINE
     Route: 065
     Dates: start: 20250814, end: 20251004
  6. OXALIPLATIN [Suspect]
     Active Substance: OXALIPLATIN
     Indication: Colorectal cancer metastatic
     Dosage: INTRAVENOUS DRIP
     Route: 042
     Dates: start: 20250725, end: 20250725
  7. OXALIPLATIN [Suspect]
     Active Substance: OXALIPLATIN
     Dosage: CYCLE 4 TOOK PLACE WITH OXALIPLATIN 230 MG
     Route: 065
     Dates: start: 20251003
  8. ENALAPRIL MALEATE\LERCANIDIPINE HYDROCHLORIDE [Concomitant]
     Active Substance: ENALAPRIL MALEATE\LERCANIDIPINE HYDROCHLORIDE
     Route: 065
  9. INDAPAMIDE [Concomitant]
     Active Substance: INDAPAMIDE
     Indication: Hypertension
     Route: 065
  10. SIMVASTATIN [Concomitant]
     Active Substance: SIMVASTATIN
     Indication: Dyslipidaemia
     Route: 065
  11. SYMBICORT [Concomitant]
     Active Substance: BUDESONIDE\FORMOTEROL FUMARATE DIHYDRATE
     Indication: Asthma
     Dosage: AS NECESSARY
     Route: 065
  12. DOLIPRANE [Concomitant]
     Active Substance: ACETAMINOPHEN
     Indication: Abdominal pain
     Dosage: AS NECESSARY
     Route: 065
  13. ENALAPRIL [Concomitant]
     Active Substance: ENALAPRIL
     Route: 065
  14. SPIRONOLACTONE [Concomitant]
     Active Substance: SPIRONOLACTONE
     Route: 065

REACTIONS (4)
  - Thrombocytopenia [Unknown]
  - Infection [Recovered/Resolved]
  - Hyponatraemia [Unknown]
  - Abdominal pain [Unknown]

NARRATIVE: CASE EVENT DATE: 20250728
